FAERS Safety Report 6923998-6 (Version None)
Quarter: 2010Q3

REPORT INFORMATION
  Report Type: 
  Country: None (occurrence: None)
  Receive Date: 20100813
  Receipt Date: 20100805
  Transmission Date: 20110219
  Serious: Yes (Hospitalization)
  Sender: FDA-Public Use
  Company Number: US-CELGENEUS-163-21880-10080357

PATIENT
  Age: 56 Year
  Sex: Female
  Weight: 95 kg

DRUGS (13)
  1. REVLIMID [Suspect]
     Route: 048
     Dates: start: 20100712, end: 20100725
  2. DEXAMETHASONE [Suspect]
     Route: 048
     Dates: start: 20100712, end: 20100715
  3. BORTEZOMIB [Suspect]
     Route: 051
     Dates: start: 20100712, end: 20100715
  4. ASPIRIN [Concomitant]
     Indication: PRODUCT USED FOR UNKNOWN INDICATION
     Route: 048
  5. VANCOMYCIN [Concomitant]
     Indication: UROSEPSIS
     Route: 065
  6. CEFEPIME [Concomitant]
     Indication: UROSEPSIS
     Route: 065
  7. ACYCLOVIR [Concomitant]
     Indication: PRODUCT USED FOR UNKNOWN INDICATION
     Route: 065
  8. HYDROCHLOROTHIAZIDE [Concomitant]
     Indication: PRODUCT USED FOR UNKNOWN INDICATION
     Route: 065
  9. KADIAN [Concomitant]
     Indication: PRODUCT USED FOR UNKNOWN INDICATION
     Route: 065
  10. LACTULOSE [Concomitant]
     Indication: PRODUCT USED FOR UNKNOWN INDICATION
     Route: 065
  11. MORPHINE [Concomitant]
     Indication: PRODUCT USED FOR UNKNOWN INDICATION
     Route: 065
  12. METOPROLOL TARTRATE [Concomitant]
     Indication: PRODUCT USED FOR UNKNOWN INDICATION
     Route: 065
  13. CIPRO [Concomitant]
     Indication: PRODUCT USED FOR UNKNOWN INDICATION
     Route: 065

REACTIONS (4)
  - ALANINE AMINOTRANSFERASE INCREASED [None]
  - ATRIAL FIBRILLATION [None]
  - SINUS TACHYCARDIA [None]
  - UROSEPSIS [None]
